FAERS Safety Report 8382012-9 (Version None)
Quarter: 2012Q2

REPORT INFORMATION
  Report Type: 
  Country: None (occurrence: None)
  Receive Date: 20120522
  Receipt Date: 20120522
  Transmission Date: 20120825
  Serious: Yes (Death, Life-Threatening)
  Sender: FDA-Public Use
  Company Number: None

PATIENT
  Age: 43 Year
  Sex: Female
  Weight: 136.0791 kg

DRUGS (1)
  1. TAPENTADOL HYDROCHLORIDE 75MG NUCYNTA [Suspect]
     Indication: PAIN
     Dosage: 75MG TAB 4 TIMES DAILY OTHER
     Route: 050

REACTIONS (4)
  - MEMORY IMPAIRMENT [None]
  - EMPHYSEMA [None]
  - SLEEP APNOEA SYNDROME [None]
  - ACCIDENTAL OVERDOSE [None]
